FAERS Safety Report 5958147-4 (Version None)
Quarter: 2008Q4

REPORT INFORMATION
  Report Type: 
  Country: None (occurrence: None)
  Receive Date: 20081117
  Receipt Date: 20081117
  Transmission Date: 20090506
  Serious: Yes (Life-Threatening)
  Sender: FDA-Public Use
  Company Number: None

PATIENT
  Sex: Male
  Weight: 87 kg

DRUGS (2)
  1. RAPAMYCIN [Suspect]
     Indication: COLORECTAL CANCER METASTATIC
     Dosage: 16MG Q WEEK PO
     Route: 048
     Dates: start: 20080827, end: 20081008
  2. KETOCONAZOLE [Suspect]
     Indication: COLORECTAL CANCER METASTATIC
     Dosage: 200 MG BID X 1; QD X 3 PO
     Route: 048
     Dates: start: 20080902, end: 20081010

REACTIONS (6)
  - ASCITES [None]
  - BRADYCARDIA [None]
  - DEHYDRATION [None]
  - HYDRONEPHROSIS [None]
  - PLEURAL EFFUSION [None]
  - SMALL INTESTINAL OBSTRUCTION [None]
